FAERS Safety Report 23634947 (Version 2)
Quarter: 2025Q3

REPORT INFORMATION
  Report Type: Report from Study
  Country: US (occurrence: US)
  Receive Date: 20240315
  Receipt Date: 20250818
  Transmission Date: 20251021
  Serious: Yes (Other)
  Sender: TAKEDA
  Company Number: US-TAKEDA-2024TUS023567

PATIENT
  Age: 11 Year
  Sex: Male

DRUGS (7)
  1. ADVATE [Suspect]
     Active Substance: ANTIHEMOPHILIC FACTOR, HUMAN RECOMBINANT
     Indication: Haemorrhage
  2. ADVATE [Suspect]
     Active Substance: ANTIHEMOPHILIC FACTOR, HUMAN RECOMBINANT
  3. ADVATE [Suspect]
     Active Substance: ANTIHEMOPHILIC FACTOR, HUMAN RECOMBINANT
  4. ADYNOVATE [Suspect]
     Active Substance: ANTIHEMOPHILIC FACTOR, HUMAN RECOMBINANT
     Indication: Product used for unknown indication
  5. ADYNOVATE [Suspect]
     Active Substance: ANTIHEMOPHILIC FACTOR, HUMAN RECOMBINANT
  6. ADYNOVATE [Suspect]
     Active Substance: ANTIHEMOPHILIC FACTOR, HUMAN RECOMBINANT
  7. AMICAR [Concomitant]
     Active Substance: AMINOCAPROIC ACID

REACTIONS (14)
  - Skin laceration [Unknown]
  - Tongue biting [Unknown]
  - Haemarthrosis [Unknown]
  - Spontaneous haemorrhage [Unknown]
  - Gingival bleeding [Unknown]
  - Haemorrhage [Unknown]
  - Pain in extremity [Unknown]
  - Limb injury [Unknown]
  - Oropharyngeal pain [Recovered/Resolved]
  - Influenza [Unknown]
  - Extra dose administered [Unknown]
  - Product use issue [Unknown]
  - Pain [Unknown]
  - Injury [Unknown]

NARRATIVE: CASE EVENT DATE: 20200830
